FAERS Safety Report 7004646-6 (Version None)
Quarter: 2010Q3

REPORT INFORMATION
  Report Type: 
  Country: None (occurrence: None)
  Receive Date: 20100921
  Receipt Date: 20100914
  Transmission Date: 20110219
  Serious: Yes (Other)
  Sender: FDA-Public Use
  Company Number: US-ASTRAZENECA-2007UW18696

PATIENT
  Age: 14852 Day
  Sex: Male
  Weight: 82.1 kg

DRUGS (28)
  1. SEROQUEL [Suspect]
     Indication: SCHIZOPHRENIA
     Dosage: 100 MG - 300 MG
     Route: 048
     Dates: start: 20020101, end: 20040101
  2. SEROQUEL [Suspect]
     Dosage: 100-600 MG, 100- 1200 MG
     Route: 048
     Dates: start: 20030303, end: 20030723
  3. SEROQUEL [Suspect]
     Route: 048
     Dates: start: 20030605
  4. ABILIFY [Concomitant]
     Dosage: 15 MG - 30 MG
     Dates: start: 20021223, end: 20030303
  5. HALDOL [Concomitant]
     Dates: start: 20030328
  6. NAVANE [Concomitant]
     Dates: start: 20010101, end: 20030101
  7. NAVANE [Concomitant]
     Dates: start: 19991102, end: 20020405
  8. DEPAKOTE [Concomitant]
     Dosage: 750-1000 MG
     Route: 048
     Dates: start: 20030807, end: 20041102
  9. LOPID [Concomitant]
     Route: 048
  10. COGENTIN [Concomitant]
     Route: 048
  11. ATIVAN [Concomitant]
     Route: 048
  12. KLONOPIN [Concomitant]
     Route: 048
  13. TRAZODONE HCL [Concomitant]
     Route: 048
  14. GLYBURIDE [Concomitant]
     Route: 048
  15. METFORMIN [Concomitant]
     Route: 048
  16. VYTORIN [Concomitant]
     Indication: BLOOD CHOLESTEROL INCREASED
     Dosage: 10/20 MG HALF A TABLET
     Dates: start: 20070922
  17. VYTORIN [Concomitant]
     Indication: HYPERLIPIDAEMIA
     Dosage: 10/20 MG HALF A TABLET
     Dates: start: 20070922
  18. LIPITOR [Concomitant]
     Indication: HYPERLIPIDAEMIA
     Dates: start: 20030605
  19. CLOZARIL [Concomitant]
     Dates: start: 20080505
  20. CLOZARIL [Concomitant]
     Dosage: 100-400 MG
     Dates: start: 20030701
  21. ROZEREM [Concomitant]
     Dates: start: 20080505
  22. FLUPHENAZINE [Concomitant]
     Dosage: 5 MG, 3 TABLETS AT BEDTIME
     Dates: start: 20080505
  23. FLURAZEPAM [Concomitant]
     Dosage: 15 MG, 2 TABLETS AT BEDTIME AS REQUIRED
     Dates: start: 19990202
  24. LOVAZA [Concomitant]
     Dates: start: 20070922
  25. RISPERDAL [Concomitant]
     Indication: SCHIZOPHRENIA
     Dates: start: 20010227, end: 20011129
  26. ZYPREXA [Concomitant]
     Indication: SCHIZOPHRENIA
     Dates: start: 19981124, end: 19991014
  27. PHEN PHEN [Concomitant]
     Indication: WEIGHT CONTROL
  28. APEX [Concomitant]
     Indication: WEIGHT CONTROL

REACTIONS (10)
  - CHOLECYSTITIS ACUTE [None]
  - CHOLELITHIASIS [None]
  - DIABETES MELLITUS INADEQUATE CONTROL [None]
  - DIABETIC COMPLICATION [None]
  - DIABETIC NEUROPATHY [None]
  - GALLBLADDER DISORDER [None]
  - HEART RATE INCREASED [None]
  - HYPERGLYCAEMIA [None]
  - HYPOGLYCAEMIA [None]
  - TYPE 2 DIABETES MELLITUS [None]
